FAERS Safety Report 4877907-4 (Version None)
Quarter: 2006Q1

REPORT INFORMATION
  Report Type: 
  Country: None (occurrence: None)
  Receive Date: 20060110
  Receipt Date: 20060103
  Transmission Date: 20060701
  Serious: Yes (Other)
  Sender: FDA-Public Use
  Company Number: 2006002318

PATIENT
  Age: 43 Year
  Sex: Female
  Weight: 60 kg

DRUGS (4)
  1. LYRICA [Suspect]
     Indication: PAIN
     Dosage: (75 MG,), ORAL
     Route: 048
  2. CITALOPRAM HYDROBROMIDE [Concomitant]
  3. IBUPROFEN [Concomitant]
  4. ACETAMINOPHEN W/ CODEINE [Concomitant]

REACTIONS (4)
  - DIZZINESS [None]
  - FALL [None]
  - MEMORY IMPAIRMENT [None]
  - SYNCOPE [None]
